FAERS Safety Report 9434988 (Version 2)
Quarter: 2013Q3

REPORT INFORMATION
  Report Type: Spontaneous
  Country: DE (occurrence: None)
  Receive Date: 20130730
  Receipt Date: 20130821
  Transmission Date: 20140515
  Serious: Yes (Hospitalization, Other)
  Sender: FDA-Public Use
  Company Number: 2013MPI00382

PATIENT
  Age: 71 Year
  Sex: Female

DRUGS (3)
  1. ADCETRIS [Suspect]
     Indication: HODGKIN^S DISEASE RECURRENT
     Route: 042
     Dates: start: 20121113, end: 2013
  2. PREDNISOLONE [Suspect]
     Indication: ERYTHEMA
     Dates: start: 20130109, end: 2013
  3. PREDNISOLONE [Suspect]
     Indication: PRURITUS
     Dates: start: 20130109, end: 2013

REACTIONS (7)
  - Herpes zoster [None]
  - Hepatic infection fungal [None]
  - Splenic infection fungal [None]
  - Escherichia sepsis [None]
  - Diabetes mellitus [None]
  - Erythema [None]
  - Pruritus [None]
